FAERS Safety Report 17923882 (Version 1)
Quarter: 2020Q2

REPORT INFORMATION
  Report Type: Spontaneous
  Country: US (occurrence: US)
  Receive Date: 20200622
  Receipt Date: 20200622
  Transmission Date: 20200714
  Serious: No
  Sender: FDA-Public Use
  Company Number: None

PATIENT
  Age: 44 Year
  Sex: Female

DRUGS (18)
  1. DESVENLAFAXINE ER TABLETS [Concomitant]
     Active Substance: DESVENLAFAXINE
  2. CALCIUM CITRATE (CITRACAL) +D3 [Concomitant]
  3. EMGALITY [Suspect]
     Active Substance: GALCANEZUMAB-GNLM
     Indication: POST-TRAUMATIC HEADACHE
     Dosage: ?          QUANTITY:1 INJECTION(S);OTHER FREQUENCY:28 DAYS;OTHER ROUTE:THIGH AND ABDOMEN INJECTION?
     Dates: start: 20200408, end: 20200513
  4. EMGALITY [Suspect]
     Active Substance: GALCANEZUMAB-GNLM
     Indication: MIGRAINE
     Dosage: ?          QUANTITY:1 INJECTION(S);OTHER FREQUENCY:28 DAYS;OTHER ROUTE:THIGH AND ABDOMEN INJECTION?
     Dates: start: 20200408, end: 20200513
  5. CLONAZEPAM 0.5MG [Concomitant]
     Active Substance: CLONAZEPAM
  6. TIZANIDINE 4MG TABS DR. REDDY^S [Concomitant]
     Active Substance: TIZANIDINE
  7. TRAZODONE [Concomitant]
     Active Substance: TRAZODONE HYDROCHLORIDE
  8. TESTOSTERONE. [Concomitant]
     Active Substance: TESTOSTERONE
  9. DHEA [Concomitant]
     Active Substance: PRASTERONE
  10. BUSIRONE 2.5MG [Concomitant]
  11. COQMAX ME [Concomitant]
  12. COQ10 [Concomitant]
     Active Substance: UBIDECARENONE
  13. MIRALAX [Concomitant]
     Active Substance: POLYETHYLENE GLYCOL 3350
  14. BIOIDENTICAL COMPOUNDED HRT [Concomitant]
  15. FLONASE [Concomitant]
     Active Substance: FLUTICASONE PROPIONATE
  16. PROGESTERONE. [Concomitant]
     Active Substance: PROGESTERONE
  17. MAGNESIUM GLYCINATE 100MG TABS [Concomitant]
  18. VITAMIN D3 SUBLINGUAL 2000IU [Concomitant]

REACTIONS (10)
  - Fatigue [None]
  - Arthralgia [None]
  - Abdominal distension [None]
  - Anxiety [None]
  - Emotional distress [None]
  - Product use complaint [None]
  - Insomnia [None]
  - Oedema [None]
  - Weight increased [None]
  - Drug ineffective [None]

NARRATIVE: CASE EVENT DATE: 20200510
